FAERS Safety Report 5114756-6 (Version None)
Quarter: 2006Q3

REPORT INFORMATION
  Report Type: 
  Country: None (occurrence: None)
  Receive Date: 20060922
  Receipt Date: 20060912
  Transmission Date: 20061208
  Serious: Yes (Other)
  Sender: FDA-Public Use
  Company Number: 2006111247

PATIENT
  Age: 32 Year
  Sex: Male
  Weight: 72.5755 kg

DRUGS (5)
  1. GEODON [Suspect]
     Indication: ALCOHOLISM
     Dosage: 40 MG (40 MG, 1 IN 1 D)  1 MONTH AGO
  2. GEODON [Suspect]
     Indication: BIPOLAR DISORDER
     Dosage: 40 MG (40 MG, 1 IN 1 D)  1 MONTH AGO
  3. GEODON [Suspect]
     Indication: MANIA
     Dosage: 40 MG (40 MG, 1 IN 1 D)  1 MONTH AGO
  4. GEODON [Suspect]
     Indication: SCHIZOPHRENIA
     Dosage: 40 MG (40 MG, 1 IN 1 D)  1 MONTH AGO
  5. LAMICTAL [Concomitant]

REACTIONS (1)
  - ARRHYTHMIA [None]
